FAERS Safety Report 19228388 (Version 4)
Quarter: 2021Q3

REPORT INFORMATION
  Report Type: Spontaneous
  Country: US (occurrence: US)
  Receive Date: 20210506
  Receipt Date: 20210824
  Transmission Date: 20211014
  Serious: Yes (Other)
  Sender: FDA-Public Use
  Company Number: US-PFIZER INC-2021504063

PATIENT
  Age: 82 Year
  Sex: Female
  Weight: 64.6 kg

DRUGS (22)
  1. ESOMEPRAZOLE. [Concomitant]
     Active Substance: ESOMEPRAZOLE MAGNESIUM
  2. JANUVIA [Concomitant]
     Active Substance: SITAGLIPTIN PHOSPHATE
  3. LEVEMIR [Concomitant]
     Active Substance: INSULIN DETEMIR
  4. VITAMIN D3 WILD [Concomitant]
     Active Substance: CHOLECALCIFEROL
  5. SOTALOL. [Concomitant]
     Active Substance: SOTALOL
  6. SUCRALFATE. [Concomitant]
     Active Substance: SUCRALFATE
  7. FLUTICASONE PROPIONATE (GLUCOCORTICOID) [Concomitant]
     Active Substance: FLUTICASONE PROPIONATE
     Route: 045
  8. HUMALOG [Concomitant]
     Active Substance: INSULIN LISPRO
     Dosage: UNK
  9. MAGNESIUM OXIDE HEAVY [Concomitant]
     Active Substance: MAGNESIUM OXIDE
  10. SPIRONOLACTONE. [Concomitant]
     Active Substance: SPIRONOLACTONE
  11. XIIDRA [Concomitant]
     Active Substance: LIFITEGRAST
  12. VYNDAMAX [Suspect]
     Active Substance: TAFAMIDIS
     Indication: AMYLOIDOSIS
     Dosage: 61 MG, DAILY
     Route: 048
     Dates: start: 20210409
  13. BENAZEPRIL [Concomitant]
     Active Substance: BENAZEPRIL HYDROCHLORIDE
  14. CALTRATE [Concomitant]
     Active Substance: CALCIUM CARBONATE
  15. ELIQUIS [Concomitant]
     Active Substance: APIXABAN
  16. AZELASTIN [Concomitant]
     Route: 045
  17. DICYCLOMINE [Concomitant]
     Active Substance: DICYCLOMINE HYDROCHLORIDE
  18. SYNTHROID [Concomitant]
     Active Substance: LEVOTHYROXINE SODIUM
  19. ATORVASTATIN [Concomitant]
     Active Substance: ATORVASTATIN
  20. FUROSEMIDE. [Concomitant]
     Active Substance: FUROSEMIDE
  21. VITAMIN B6 F [Concomitant]
  22. VITAMIN C [Concomitant]
     Active Substance: ASCORBIC ACID

REACTIONS (5)
  - Neuropathy peripheral [Not Recovered/Not Resolved]
  - Dizziness [Not Recovered/Not Resolved]
  - Arthralgia [Not Recovered/Not Resolved]
  - Decreased appetite [Not Recovered/Not Resolved]
  - Drug intolerance [Not Recovered/Not Resolved]
